FAERS Safety Report 8054903-X (Version None)
Quarter: 2011Q4

REPORT INFORMATION
  Report Type: 
  Country: None (occurrence: None)
  Receive Date: 20111216
  Receipt Date: 20111021
  Transmission Date: 20120403
  Serious: Yes (Other)
  Sender: FDA-Public Use
  Company Number: 302644USA

PATIENT
  Age: 31 Year
  Sex: Female
  Weight: 90.7194 kg

DRUGS (3)
  1. MULTI-VITAMINS [Concomitant]
  2. IRON [Concomitant]
  3. PARAGARD T 380A [Suspect]
     Indication: CONTRACEPTION
     Dosage: I.U.
     Dates: start: 20030915

REACTIONS (2)
  - HAEMORRHAGE [None]
  - ABORTION SPONTANEOUS [None]
